FAERS Safety Report 8138206-0 (Version None)
Quarter: 2012Q1

REPORT INFORMATION
  Report Type: 
  Country: None (occurrence: None)
  Receive Date: 20120215
  Receipt Date: 20120208
  Transmission Date: 20120608
  Serious: Yes (Hospitalization, Other)
  Sender: FDA-Public Use
  Company Number: FR-ASTELLAS-2012EU000551

PATIENT
  Sex: Male
  Weight: 75 kg

DRUGS (12)
  1. PROGRAF [Suspect]
     Indication: PROPHYLAXIS AGAINST TRANSPLANT REJECTION
     Dosage: 6.5 MG, BID
     Route: 048
     Dates: start: 20110727, end: 20110812
  2. MYCOPHENOLATE MOFETIL (CELLCEPT) [Concomitant]
     Indication: IMMUNOSUPPRESSION
     Dosage: 2 G, UNKNOWN/D
     Route: 048
     Dates: start: 20110727, end: 20120116
  3. NEBIVOLOL HCL [Concomitant]
     Indication: HYPERTENSION
     Dosage: 5 MG, UNKNOWN/D
     Route: 048
     Dates: start: 20110705
  4. CORTICOSTEROID NOS [Concomitant]
     Dosage: 5 MG, UNKNOWN/D
     Route: 065
  5. ARANESP [Concomitant]
     Indication: ANAEMIA
     Dosage: 50 UG, MONTHLY
     Route: 042
     Dates: start: 20110806
  6. PREDNISONE TAB [Concomitant]
     Indication: IMMUNOSUPPRESSION
     Dosage: 7.5 MG, UNKNOWN/D
     Route: 048
     Dates: start: 20110727
  7. AMLODIPINE [Concomitant]
     Indication: HYPERTENSION
     Dosage: 10 MG, UNKNOWN/D
     Route: 048
     Dates: start: 20110805
  8. PROGRAF [Suspect]
     Dosage: 11 MG, UNKNOWN/D
     Route: 048
     Dates: start: 20110813, end: 20110816
  9. TACROLIMUS [Suspect]
     Indication: PROPHYLAXIS AGAINST TRANSPLANT REJECTION
     Dosage: 9 MG, UNKNOWN/D
     Route: 048
     Dates: start: 20111004, end: 20111026
  10. TACROLIMUS [Suspect]
     Dosage: 10 MG, UNKNOWN/D
     Route: 048
     Dates: start: 20111027, end: 20111215
  11. PROGRAF [Suspect]
     Dosage: 9 MG, UNKNOWN/D
     Route: 048
     Dates: start: 20110921, end: 20111004
  12. PROGRAF [Suspect]
     Dosage: 12.5 MG, UNKNOWN/D
     Route: 048
     Dates: start: 20110817, end: 20110826

REACTIONS (2)
  - HERPES ZOSTER OPHTHALMIC [None]
  - COMPLICATIONS OF TRANSPLANTED KIDNEY [None]
